FAERS Safety Report 7943939-2 (Version None)
Quarter: 2011Q4

REPORT INFORMATION
  Report Type: 
  Country: None (occurrence: None)
  Receive Date: 20111128
  Receipt Date: 20111116
  Transmission Date: 20120403
  Serious: Yes (Other)
  Sender: FDA-Public Use
  Company Number: US-ASTRAZENECA-2009UW03042

PATIENT
  Age: 61 Year
  Sex: Female
  Weight: 99.8 kg

DRUGS (21)
  1. SEROQUEL [Suspect]
     Indication: OBSESSIVE-COMPULSIVE DISORDER
     Dosage: 100 MG IN AM, 900 MG IN AFTERNOON, AND 100 MG AT NIGHT
     Route: 048
     Dates: start: 20050101
  2. SEROQUEL [Suspect]
     Indication: BIPOLAR I DISORDER
     Dosage: 100 MG IN AM, 900 MG IN AFTERNOON, AND 100 MG AT NIGHT
     Route: 048
     Dates: start: 20050101
  3. SEROQUEL [Suspect]
     Indication: BIPOLAR II DISORDER
     Dosage: 100 MG IN AM, 900 MG IN AFTERNOON, AND 100 MG AT NIGHT
     Route: 048
     Dates: start: 20050101
  4. CLONOPIN [Concomitant]
  5. LISINOPRIL [Concomitant]
     Indication: HYPERTENSION
  6. SEROQUEL [Suspect]
     Route: 048
     Dates: start: 20100101
  7. LITHIUM [Concomitant]
  8. SEROQUEL [Suspect]
     Route: 048
     Dates: start: 20050501, end: 20100101
  9. SEROQUEL [Suspect]
     Route: 048
     Dates: start: 20050501, end: 20100101
  10. SEROQUEL [Suspect]
     Route: 048
     Dates: start: 20100101
  11. ALLEGRA [Concomitant]
  12. AVANDIA [Concomitant]
     Indication: DIABETES MELLITUS
  13. TRAZODONE HCL [Concomitant]
  14. METFORMIN HCL [Concomitant]
     Indication: HYPERTENSION
  15. VITAMIN D [Concomitant]
  16. SEROQUEL [Suspect]
     Route: 048
     Dates: start: 20050501, end: 20100101
  17. NUVIGIL [Concomitant]
     Indication: SLEEP APNOEA SYNDROME
  18. SEROQUEL [Suspect]
     Route: 048
     Dates: start: 20100101
  19. FISH OIL [Concomitant]
  20. SYNTHROID [Concomitant]
  21. DIOVAN [Concomitant]

REACTIONS (13)
  - PHYSICAL ASSAULT [None]
  - WEIGHT INCREASED [None]
  - BALANCE DISORDER [None]
  - MYOCARDIAL INFARCTION [None]
  - MEMORY IMPAIRMENT [None]
  - DIABETES MELLITUS [None]
  - CONCUSSION [None]
  - HYPERTENSION [None]
  - CHEST PAIN [None]
  - METABOLIC SYNDROME [None]
  - PLANTAR FASCIITIS [None]
  - UTERINE CANCER [None]
  - POST-TRAUMATIC AMNESTIC DISORDER [None]
